FAERS Safety Report 13353149 (Version 3)
Quarter: 2017Q2

REPORT INFORMATION
  Report Type: Spontaneous
  Country: US (occurrence: US)
  Receive Date: 20170321
  Receipt Date: 20170427
  Transmission Date: 20170830
  Serious: Yes (Other)
  Sender: FDA-Public Use
  Company Number: US-AMGEN-USASP2017040036

PATIENT
  Age: 53 Year
  Sex: Female
  Weight: 53.52 kg

DRUGS (4)
  1. VITAMIN B COMPLEX [Concomitant]
     Active Substance: CYANOCOBALAMIN\DEXPANTHENOL\NIACINAMIDE\PYRIDOXINE HYDROCHLORIDE\RIBOFLAVIN 5^-PHOSPHATE SODIUM\THIAMINE HYDROCHLORIDE\VITAMIN B COMPLEX
     Dosage: 1 UNIT, QD
  2. MULTIVITAMIN [Concomitant]
     Active Substance: VITAMINS
     Dosage: 1 UNIT, QD
  3. VITAMIN D3 [Concomitant]
     Active Substance: CHOLECALCIFEROL
     Dosage: 1 UNIT, QD
  4. PROLIA [Suspect]
     Active Substance: DENOSUMAB
     Indication: OSTEOPOROSIS
     Dosage: UNK UNK, Q6MO
     Route: 058
     Dates: start: 20150915

REACTIONS (5)
  - Leiomyosarcoma [Recovered/Resolved]
  - Vitamin D deficiency [Unknown]
  - Insomnia [Unknown]
  - Respiratory tract infection [Unknown]
  - Chest pain [Unknown]

NARRATIVE: CASE EVENT DATE: 201603
